FAERS Safety Report 7547007-3 (Version None)
Quarter: 2011Q2

REPORT INFORMATION
  Report Type: 
  Country: None (occurrence: None)
  Receive Date: 20110524
  Receipt Date: 20110228
  Transmission Date: 20111010
  Serious: No
  Sender: FDA-Public Use
  Company Number: 028399

PATIENT
  Sex: Female
  Weight: 65.8 kg

DRUGS (3)
  1. OMEPRAZOLE [Concomitant]
  2. CIMZIA [Suspect]
     Indication: CROHN'S DISEASE
     Dosage: (400 MG 1X/4 WEEKS SUBCUTANEOUS)
     Route: 058
  3. LEXAPRO [Concomitant]

REACTIONS (2)
  - TOOTHACHE [None]
  - TOOTH INFECTION [None]
